FAERS Safety Report 25715272 (Version 2)
Quarter: 2025Q3

REPORT INFORMATION
  Report Type: Spontaneous
  Country: CO (occurrence: CO)
  Receive Date: 20250822
  Receipt Date: 20250917
  Transmission Date: 20251020
  Serious: Yes (Other)
  Sender: BAYER HEALTHCARE PHARMACEUTICALS INC.
  Company Number: CO-BAYER-2025A110673

PATIENT
  Sex: Male

DRUGS (2)
  1. ADEMPAS [Suspect]
     Active Substance: RIOCIGUAT
     Indication: Pulmonary arterial hypertension
  2. OXYGEN [Concomitant]
     Active Substance: OXYGEN
     Indication: Product used for unknown indication

REACTIONS (8)
  - Spinal pain [Not Recovered/Not Resolved]
  - Asphyxia [Not Recovered/Not Resolved]
  - Spinal pain [Recovering/Resolving]
  - Gait disturbance [Not Recovered/Not Resolved]
  - Yawning [Not Recovered/Not Resolved]
  - Lung disorder [None]
  - Illness [None]
  - Mobility decreased [None]

NARRATIVE: CASE EVENT DATE: 20250701
